FAERS Safety Report 20952480 (Version 1)
Quarter: 2022Q2

REPORT INFORMATION
  Report Type: Spontaneous
  Country: CN (occurrence: CN)
  Receive Date: 20220613
  Receipt Date: 20220613
  Transmission Date: 20220721
  Serious: Yes (Hospitalization, Other)
  Sender: FDA-Public Use
  Company Number: None

PATIENT
  Age: 46 Year
  Sex: Female
  Weight: 60 kg

DRUGS (2)
  1. CYCLOPHOSPHAMIDE [Suspect]
     Active Substance: CYCLOPHOSPHAMIDE
     Indication: Breast cancer female
     Dosage: 0.95 G, QD, EPIRUBICIN (70MG) D1-2 + CYCLOPHOSPHAMIDE (0.95G) D1/Q21 DAYS
     Route: 041
     Dates: start: 20220503, end: 20220503
  2. EPIRUBICIN HYDROCHLORIDE [Suspect]
     Active Substance: EPIRUBICIN HYDROCHLORIDE
     Indication: Breast cancer female
     Dosage: 70 MG, QD, DOSAGE FORM: POWDER INJECTION, EPIRUBICIN (70MG) D1-2 + CYCLOPHOSPHAMIDE (0.95G) D1/Q21 D
     Route: 041
     Dates: start: 20220503, end: 20220504

REACTIONS (3)
  - Gastrointestinal disorder [Recovering/Resolving]
  - Nausea [Recovering/Resolving]
  - Vomiting [Recovering/Resolving]

NARRATIVE: CASE EVENT DATE: 20220505
